FAERS Safety Report 8524726-3 (Version None)
Quarter: 2012Q3

REPORT INFORMATION
  Report Type: 
  Country: None (occurrence: None)
  Receive Date: 20120720
  Receipt Date: 20120706
  Transmission Date: 20120928
  Serious: Yes (Congenital Anomaly)
  Sender: FDA-Public Use
  Company Number: GB-ELI_LILLY_AND_COMPANY-GB201207002182

PATIENT

DRUGS (4)
  1. IMIPRAMINE HCL [Concomitant]
     Route: 064
  2. CYMBALTA [Suspect]
     Dosage: 90 MG, QD
     Route: 064
  3. IMIPRAMINE HCL [Concomitant]
     Route: 064
  4. CYMBALTA [Suspect]
     Dosage: 90 MG, QD
     Route: 064

REACTIONS (2)
  - FOETAL EXPOSURE DURING PREGNANCY [None]
  - CLEFT PALATE [None]
